FAERS Safety Report 9149365 (Version 9)
Quarter: 2014Q1

REPORT INFORMATION
  Report Type: Spontaneous
  Country: US (occurrence: US)
  Receive Date: 20130308
  Receipt Date: 20140131
  Transmission Date: 20141002
  Serious: No
  Sender: FDA-Public Use
  Company Number: US-PFIZER INC-2013077288

PATIENT
  Age: 63 Year
  Sex: Female
  Weight: 108 kg

DRUGS (14)
  1. SUTENT [Suspect]
     Indication: CARCINOID TUMOUR OF THE STOMACH
     Dosage: 50 MG, 1X/DAY
     Dates: start: 20130224, end: 20130317
  2. SUTENT [Suspect]
     Dosage: 50 MG, 1X/DAY, 3 WEEKS ON/2 WEEKS OFF
     Route: 048
     Dates: start: 201303, end: 20130402
  3. SUTENT [Suspect]
     Dosage: 37.5 MG, 1X/DAY, 3 WEEKS ON/2 WEEKS OFF
     Dates: start: 20130402
  4. SUTENT [Suspect]
     Dosage: 37.5 MG DAILY, CYCLIC, 2 WEEKS ON AND 2 WEEKS OFF
  5. AZOR [Concomitant]
     Indication: HYPERTENSION
     Dosage: 10/40 MG, 1X/DAY
  6. AMBIEN [Concomitant]
     Dosage: UNK
  7. ATIVAN [Concomitant]
     Dosage: UNK
  8. OMEPRAZOLE [Concomitant]
     Dosage: UNK
  9. PRILOSEC [Concomitant]
     Dosage: UNK, AM
  10. GAS-X [Concomitant]
     Dosage: UNK
  11. CARAFATE [Concomitant]
     Dosage: UNK
  12. PHENERGAN [Concomitant]
     Dosage: UNK
  13. NYSTATIN/VISCOUS LIDOCAINE [Concomitant]
     Dosage: UNK
  14. TAGAMET [Concomitant]
     Dosage: UNK, PM

REACTIONS (45)
  - Off label use [Unknown]
  - Dysgeusia [Unknown]
  - Abdominal discomfort [Unknown]
  - Gastrooesophageal reflux disease [Recovered/Resolved]
  - Nausea [Not Recovered/Not Resolved]
  - Abdominal distension [Unknown]
  - Abdominal pain [Unknown]
  - Decreased appetite [Unknown]
  - Oral mucosal blistering [Recovered/Resolved]
  - Oral pain [Recovered/Resolved]
  - Dyspepsia [Recovered/Resolved]
  - Flatulence [Recovered/Resolved]
  - Red blood cell count decreased [Unknown]
  - Platelet count decreased [Unknown]
  - White blood cell count decreased [Not Recovered/Not Resolved]
  - Haemoglobin decreased [Unknown]
  - Erythema [Not Recovered/Not Resolved]
  - Oral mucosal erythema [Not Recovered/Not Resolved]
  - Gastric disorder [Not Recovered/Not Resolved]
  - Gastrooesophageal reflux disease [Not Recovered/Not Resolved]
  - Flatulence [Not Recovered/Not Resolved]
  - Back pain [Not Recovered/Not Resolved]
  - Vomiting [Not Recovered/Not Resolved]
  - Abdominal distension [Not Recovered/Not Resolved]
  - Hypoaesthesia [Not Recovered/Not Resolved]
  - Paraesthesia [Not Recovered/Not Resolved]
  - Hyperkeratosis [Not Recovered/Not Resolved]
  - Skin fissures [Not Recovered/Not Resolved]
  - Yellow skin [Not Recovered/Not Resolved]
  - Chest pain [Unknown]
  - Dyspepsia [Unknown]
  - Hyperchlorhydria [Unknown]
  - Vomiting [Unknown]
  - Liver disorder [Unknown]
  - Lymphadenopathy [Unknown]
  - Pain in extremity [Unknown]
  - Arthralgia [Unknown]
  - Yellow skin [Unknown]
  - Abdominal pain upper [Unknown]
  - Dyspepsia [Unknown]
  - Back pain [Unknown]
  - Local swelling [Unknown]
  - Diarrhoea [Unknown]
  - Hypophagia [Unknown]
  - Dysphagia [Not Recovered/Not Resolved]
